FAERS Safety Report 8118199-2 (Version None)
Quarter: 2012Q1

REPORT INFORMATION
  Report Type: 
  Country: None (occurrence: None)
  Receive Date: 20120207
  Receipt Date: 20120128
  Transmission Date: 20120608
  Serious: Yes (Other)
  Sender: FDA-Public Use
  Company Number: US-JNJFOC-20120113198

PATIENT
  Age: 10 Year
  Sex: Female
  Weight: 25 kg

DRUGS (13)
  1. ACETAMINOPHEN [Concomitant]
     Indication: PREMEDICATION
  2. REMICADE [Suspect]
     Route: 042
     Dates: start: 20110101, end: 20110130
  3. FOLIC ACID [Concomitant]
     Indication: CROHN'S DISEASE
     Route: 048
  4. HYDROCORTISONE [Concomitant]
     Indication: PREMEDICATION
     Route: 065
  5. REMICADE [Suspect]
     Indication: CROHN'S DISEASE
     Route: 042
     Dates: start: 20110830, end: 20110830
  6. ZINC SULFATE [Concomitant]
     Indication: CROHN'S DISEASE
     Route: 048
  7. CORTIFOAM [Concomitant]
     Indication: CROHN'S DISEASE
     Route: 054
  8. VITAMIN D [Concomitant]
     Indication: CROHN'S DISEASE
     Route: 048
  9. IRON [Concomitant]
     Indication: CROHN'S DISEASE
     Route: 048
  10. BENADRYL [Concomitant]
     Indication: PREMEDICATION
     Route: 065
  11. ASACOL [Concomitant]
     Indication: CROHN'S DISEASE
     Route: 048
  12. CLARITIN [Concomitant]
     Indication: PREMEDICATION
     Route: 065
  13. ZYRTEC [Concomitant]
     Indication: MULTIPLE ALLERGIES
     Route: 048

REACTIONS (4)
  - DYSPNOEA [None]
  - INFUSION RELATED REACTION [None]
  - OXYGEN SATURATION DECREASED [None]
  - WHEEZING [None]
